APPROVED DRUG PRODUCT: OXYCET
Active Ingredient: ACETAMINOPHEN; OXYCODONE HYDROCHLORIDE
Strength: 325MG;5MG
Dosage Form/Route: TABLET;ORAL
Application: A087463 | Product #001 | TE Code: AA
Applicant: SPECGX LLC
Approved: Dec 7, 1983 | RLD: No | RS: No | Type: RX